FAERS Safety Report 9475884 (Version 4)
Quarter: 2013Q4

REPORT INFORMATION
  Report Type: Spontaneous
  Country: JP (occurrence: JP)
  Receive Date: 20130826
  Receipt Date: 20131122
  Transmission Date: 20140711
  Serious: Yes (Other)
  Sender: FDA-Public Use
  Company Number: JP-ROCHE-1258082

PATIENT
  Age: 70 Year
  Sex: Female
  Weight: 65 kg

DRUGS (4)
  1. ACTEMRA [Suspect]
     Indication: RHEUMATOID ARTHRITIS
     Route: 058
     Dates: start: 20130619, end: 20130717
  2. FOSRENOL [Concomitant]
     Route: 048
     Dates: start: 20121105
  3. CINACALCET HYDROCHLORIDE [Concomitant]
     Route: 048
     Dates: start: 20091221
  4. PRECIPITATED CALCIUM CARBONATE [Concomitant]
     Route: 048
     Dates: start: 20121105

REACTIONS (4)
  - Erythema [Not Recovered/Not Resolved]
  - Swelling [Unknown]
  - Erythema [Recovered/Resolved]
  - Erythema [Unknown]
